FAERS Safety Report 6663432-7 (Version None)
Quarter: 2010Q2

REPORT INFORMATION
  Report Type: 
  Country: None (occurrence: None)
  Receive Date: 20100401
  Receipt Date: 20100329
  Transmission Date: 20101027
  Serious: Yes (Death)
  Sender: FDA-Public Use
  Company Number: ES-ASTRAZENECA-2010SE13790

PATIENT
  Age: 20 Year
  Sex: Female
  Weight: 55 kg

DRUGS (4)
  1. PROPOFOL [Suspect]
     Indication: SEDATION
     Dosage: DOSE BETWEEN 2.6-6 MG/KG/H
  2. MIDAZOLAM HCL [Concomitant]
     Indication: SEDATION
  3. MANNITOL LOADS [Concomitant]
     Indication: SEDATION
  4. HYPERTONIC FLUIDS [Concomitant]
     Indication: SEDATION

REACTIONS (3)
  - CARDIO-RESPIRATORY ARREST [None]
  - PROPOFOL INFUSION SYNDROME [None]
  - SHOCK [None]
